FAERS Safety Report 7341594-6 (Version None)
Quarter: 2011Q1

REPORT INFORMATION
  Report Type: 
  Country: None (occurrence: None)
  Receive Date: 20110309
  Receipt Date: 20110304
  Transmission Date: 20110831
  Serious: Yes (Other)
  Sender: FDA-Public Use
  Company Number: US-PFIZER INC-2010170471

PATIENT
  Sex: Male

DRUGS (7)
  1. CELEBREX [Concomitant]
     Indication: INFLAMMATION
     Dosage: UNK
     Dates: start: 20030101
  2. NIASPAN [Concomitant]
     Indication: BLOOD CHOLESTEROL
     Dosage: UNK
     Dates: start: 20070101
  3. OXYCODONE [Concomitant]
     Indication: PAIN
     Dosage: UNK
     Dates: start: 20040101
  4. LISINOPRIL [Concomitant]
     Indication: HYPERTENSION
     Dosage: UNK
     Dates: start: 20060101
  5. BACLOFEN [Concomitant]
     Indication: MUSCLE RELAXANT THERAPY
     Dosage: UNK
     Dates: start: 20060101
  6. FLOVENT [Concomitant]
     Indication: ASTHMA
     Dosage: UNK
     Dates: start: 20070101, end: 20100101
  7. CHANTIX [Suspect]
     Indication: SMOKING CESSATION THERAPY
     Dosage: STARTING PACK AND 1 MG CONTINUED MONTH PACK
     Dates: start: 20080101, end: 20090101

REACTIONS (5)
  - DEPRESSION [None]
  - SCAR [None]
  - LOSS OF CONSCIOUSNESS [None]
  - NIGHTMARE [None]
  - ANKLE FRACTURE [None]
